FAERS Safety Report 6690171-9 (Version None)
Quarter: 2010Q2

REPORT INFORMATION
  Report Type: 
  Country: None (occurrence: None)
  Receive Date: 20100421
  Receipt Date: 20100414
  Transmission Date: 20101027
  Serious: Yes (Life-Threatening, Hospitalization, Other)
  Sender: FDA-Public Use
  Company Number: US-BAYER-201017106NA

PATIENT
  Age: 84 Year
  Sex: Male

DRUGS (5)
  1. AVELOX [Suspect]
     Indication: BRONCHITIS
     Route: 065
     Dates: start: 20090301
  2. FLOMAX [Concomitant]
  3. TOPROL-XL [Concomitant]
  4. LOTREL [Concomitant]
  5. LIPITOR [Concomitant]

REACTIONS (6)
  - CHEST PAIN [None]
  - HYPERSENSITIVITY [None]
  - HYPOTENSION [None]
  - MYOCARDIAL INFARCTION [None]
  - MYOCARDIAL ISCHAEMIA [None]
  - SWOLLEN TONGUE [None]
